FAERS Safety Report 9848905 (Version 1)
Quarter: 2014Q1

REPORT INFORMATION
  Report Type: Spontaneous
  Country: US (occurrence: None)
  Receive Date: 20140124
  Receipt Date: 20140124
  Transmission Date: 20141002
  Serious: Yes (Other)
  Sender: FDA-Public Use
  Company Number: None

PATIENT
  Age: 56 Year
  Sex: Female

DRUGS (1)
  1. OCTREOTIDE [Suspect]

REACTIONS (3)
  - Condition aggravated [None]
  - Product measured potency issue [None]
  - Product quality issue [None]
